FAERS Safety Report 11249502 (Version 1)
Quarter: 2015Q3

REPORT INFORMATION
  Report Type: Spontaneous
  Country: US (occurrence: US)
  Receive Date: 20150708
  Receipt Date: 20150708
  Transmission Date: 20151125
  Serious: No
  Sender: FDA-Public Use
  Company Number: US-B.I. PHARMACEUTICALS,INC./RIDGEFIELD-2015-BI-34827BP

PATIENT
  Age: 69 Year
  Sex: Female
  Weight: 54 kg

DRUGS (6)
  1. NEXIUM [Concomitant]
     Active Substance: ESOMEPRAZOLE MAGNESIUM
     Indication: GASTROOESOPHAGEAL REFLUX DISEASE
     Dosage: 40 MG
     Route: 048
     Dates: start: 201505
  2. GABAPENTIN. [Concomitant]
     Active Substance: GABAPENTIN
     Indication: COUGH
     Dosage: 200 MG
     Route: 048
     Dates: start: 2010
  3. DOXYCYCLINE HYCLATE. [Concomitant]
     Active Substance: DOXYCYCLINE HYCLATE
     Indication: GINGIVITIS
     Dosage: 20 MG
     Route: 048
     Dates: start: 201505
  4. TEMAZEPAM. [Concomitant]
     Active Substance: TEMAZEPAM
     Indication: SLEEP DISORDER
     Dosage: 30 MG
     Route: 048
     Dates: start: 2005
  5. PACRITINIB [Concomitant]
     Indication: MYELOFIBROSIS
     Dosage: 1600 MG
     Route: 048
     Dates: start: 201502
  6. SPIRIVA [Suspect]
     Active Substance: TIOTROPIUM BROMIDE MONOHYDRATE
     Indication: ASTHMA
     Dosage: 18 MCG
     Route: 055
     Dates: start: 201504, end: 201504

REACTIONS (2)
  - Dry mouth [Not Recovered/Not Resolved]
  - Off label use [Recovered/Resolved]

NARRATIVE: CASE EVENT DATE: 201504
